FAERS Safety Report 4554605-8 (Version None)
Quarter: 2005Q1

REPORT INFORMATION
  Report Type: 
  Country: None (occurrence: None)
  Receive Date: 20050118
  Receipt Date: 20041215
  Transmission Date: 20050727
  Serious: Yes (Death, Hospitalization)
  Sender: FDA-Public Use
  Company Number: US-MERCK-0412USA01977

PATIENT
  Age: 89 Year
  Sex: Female

DRUGS (2)
  1. VIOXX [Suspect]
     Indication: PAIN
     Route: 048
     Dates: start: 20040628, end: 20040901
  2. COZAAR [Concomitant]
     Route: 048

REACTIONS (2)
  - CARDIAC FAILURE [None]
  - DEATH [None]
